FAERS Safety Report 17888091 (Version 2)
Quarter: 2020Q2

REPORT INFORMATION
  Report Type: Spontaneous
  Country: US (occurrence: US)
  Receive Date: 20200612
  Receipt Date: 20200626
  Transmission Date: 20200714
  Serious: No
  Sender: FDA-Public Use
  Company Number: US-JNJFOC-20200600284

PATIENT
  Sex: Male
  Weight: 64.47 kg

DRUGS (1)
  1. ZYRTEC [Suspect]
     Active Substance: CETIRIZINE HYDROCHLORIDE
     Indication: HYPERSENSITIVITY
     Dosage: 1 TABLETS ONCE A DAY / DATE OF LAST ADMIN: 28-MAY-2020 /
     Route: 048

REACTIONS (1)
  - Drug ineffective [Unknown]
